FAERS Safety Report 20748037 (Version 3)
Quarter: 2022Q2

REPORT INFORMATION
  Report Type: Spontaneous
  Country: FR (occurrence: FR)
  Receive Date: 20220426
  Receipt Date: 20220525
  Transmission Date: 20220721
  Serious: Yes (Death)
  Sender: FDA-Public Use
  Company Number: FR-SUN PHARMACEUTICAL INDUSTRIES LTD-2022R1-333916

PATIENT
  Age: 28 Year
  Sex: Male

DRUGS (4)
  1. FENTANYL [Suspect]
     Active Substance: FENTANYL
     Indication: Injury
     Dosage: UNK (4 PATCHES OF FENTANYL 100 MICROG/H)
     Route: 065
  2. FENTANYL [Suspect]
     Active Substance: FENTANYL
     Dosage: 112 MICROGRAM/H
     Route: 065
  3. METHADONE [Suspect]
     Active Substance: METHADONE HYDROCHLORIDE
     Indication: Product used for unknown indication
     Dosage: UNK
     Route: 065
  4. MORPHINE [Concomitant]
     Active Substance: MORPHINE
     Indication: Depression
     Dosage: UNK
     Route: 065

REACTIONS (3)
  - Toxicity to various agents [Fatal]
  - Intentional product misuse [Fatal]
  - Asphyxia [Fatal]
